FAERS Safety Report 4830730-9 (Version None)
Quarter: 2005Q4

REPORT INFORMATION
  Report Type: 
  Country: None (occurrence: None)
  Receive Date: 20051115
  Receipt Date: 20051103
  Transmission Date: 20060501
  Serious: No
  Sender: FDA-Public Use
  Company Number: 12827

PATIENT
  Age: 61 Year
  Sex: Male
  Weight: 77 kg

DRUGS (8)
  1. AMIODARONE HCL [Suspect]
     Indication: VENTRICULAR TACHYCARDIA
     Dosage: 100 MG BID PO
     Route: 048
     Dates: start: 19900101, end: 20050226
  2. FENOFIBRATE [Concomitant]
  3. VALSARTAN [Concomitant]
  4. BUMETANIDE [Concomitant]
  5. SPIRONOLACTONE [Concomitant]
  6. ZOPICLONE [Concomitant]
  7. CARVEDILOL [Concomitant]
  8. WARFARIN [Concomitant]

REACTIONS (2)
  - SKIN HYPERPIGMENTATION [None]
  - SKIN STRIAE [None]
